FAERS Safety Report 6735675-5 (Version None)
Quarter: 2010Q2

REPORT INFORMATION
  Report Type: 
  Country: None (occurrence: None)
  Receive Date: 20100521
  Receipt Date: 20100510
  Transmission Date: 20101027
  Serious: Yes (Hospitalization, Other)
  Sender: FDA-Public Use
  Company Number: PHHY2010DE30323

PATIENT
  Sex: Female
  Weight: 71.9 kg

DRUGS (3)
  1. CGS 20267 T30748+ [Suspect]
     Indication: BREAST CANCER
     Dosage: 2.5 MG DAILY
     Route: 048
     Dates: start: 20090912
  2. LEVOTHYROXINE SODIUM [Concomitant]
     Dosage: UNK
     Dates: start: 19940101
  3. VERAPAMIL [Concomitant]
     Dosage: UNK
     Dates: start: 20040101

REACTIONS (8)
  - ABNORMAL SENSATION IN EYE [None]
  - BIOPSY [None]
  - BONE PAIN [None]
  - FIBROADENOMA OF BREAST [None]
  - INSOMNIA [None]
  - MACULAR DEGENERATION [None]
  - TUMOUR EXCISION [None]
  - VISUAL ACUITY REDUCED [None]
